FAERS Safety Report 6240070-1 (Version None)
Quarter: 2009Q2

REPORT INFORMATION
  Report Type: 
  Country: None (occurrence: None)
  Receive Date: 20090618
  Receipt Date: 20090618
  Transmission Date: 20091009
  Serious: No
  Sender: FDA-Public Use
  Company Number: None

PATIENT
  Age: 51 Year
  Sex: Male
  Weight: 99.7913 kg

DRUGS (1)
  1. ZICAM EXTREME [Suspect]
     Indication: RHINORRHOEA
     Dates: start: 20071206, end: 20081101

REACTIONS (2)
  - HYPOSMIA [None]
  - PRODUCT QUALITY ISSUE [None]
